FAERS Safety Report 10861739 (Version 2)
Quarter: 2015Q2

REPORT INFORMATION
  Report Type: Spontaneous
  Country: US (occurrence: US)
  Receive Date: 20150224
  Receipt Date: 20150410
  Transmission Date: 20150821
  Serious: No
  Sender: FDA-Public Use
  Company Number: US-PFIZER INC-2015063253

PATIENT
  Age: 53 Year
  Sex: Female
  Weight: 98 kg

DRUGS (3)
  1. METAXALONE. [Suspect]
     Active Substance: METAXALONE
     Dosage: 800 MG, 3X/DAY
     Route: 048
     Dates: start: 20150212
  2. SKELAXIN [Suspect]
     Active Substance: METAXALONE
     Indication: MUSCLE SPASMS
     Dosage: 800 MG, 3X/DAY
     Route: 048
     Dates: start: 20150211, end: 20150212
  3. METAXALONE. [Suspect]
     Active Substance: METAXALONE
     Indication: JOINT INJURY
     Dosage: 800 MG, 2X/DAY (ONE TABLET AT 10 AM, THEN ONE TABLET LATER IN THE DAY)
     Route: 048
     Dates: start: 20150212, end: 20150212

REACTIONS (6)
  - Dyspnoea [Recovered/Resolved]
  - Hypersensitivity [Unknown]
  - Swollen tongue [Recovered/Resolved]
  - Pharyngeal oedema [Recovered/Resolved]
  - Glossodynia [Recovered/Resolved]
  - Oropharyngeal pain [Not Recovered/Not Resolved]
